FAERS Safety Report 8308497-1 (Version None)
Quarter: 2012Q2

REPORT INFORMATION
  Report Type: 
  Country: None (occurrence: None)
  Receive Date: 20120424
  Receipt Date: 20110401
  Transmission Date: 20120825
  Serious: No
  Sender: FDA-Public Use
  Company Number: US-BRISTOL-MYERS SQUIBB COMPANY-15652332

PATIENT
  Age: 4 Decade
  Sex: Female

DRUGS (3)
  1. TAXOTERE [Suspect]
     Indication: BREAST CANCER
     Dosage: 3RD CYCLE ON 16MAR2011
     Route: 041
     Dates: start: 20110101, end: 20110316
  2. CARBOPLATIN [Suspect]
  3. HERCEPTIN [Suspect]

REACTIONS (2)
  - DIARRHOEA [None]
  - NEUTROPENIA [None]
